FAERS Safety Report 10739849 (Version 1)
Quarter: 2015Q1

REPORT INFORMATION
  Report Type: Spontaneous
  Country: US (occurrence: US)
  Receive Date: 20150127
  Receipt Date: 20150127
  Transmission Date: 20150721
  Serious: Yes (Hospitalization, Other)
  Sender: FDA-Public Use
  Company Number: US-JNJFOC-20150111716

PATIENT
  Age: 27 Year
  Sex: Male

DRUGS (2)
  1. ETHANOL [Suspect]
     Active Substance: ALCOHOL
     Indication: SUICIDE ATTEMPT
     Route: 048
     Dates: start: 20121229
  2. EXTRA STRENGTH TYLENOL PM [Suspect]
     Active Substance: ACETAMINOPHEN\DIPHENHYDRAMINE HYDROCHLORIDE
     Indication: SUICIDE ATTEMPT
     Route: 048
     Dates: start: 20121229

REACTIONS (6)
  - Intentional overdose [Unknown]
  - Agitation [Unknown]
  - Mental status changes [Unknown]
  - Aggression [Unknown]
  - Aspartate aminotransferase increased [Recovering/Resolving]
  - Irritability [Unknown]

NARRATIVE: CASE EVENT DATE: 20121229
